FAERS Safety Report 25100143 (Version 2)
Quarter: 2025Q2

REPORT INFORMATION
  Report Type: Spontaneous
  Country: US (occurrence: US)
  Receive Date: 20250320
  Receipt Date: 20250522
  Transmission Date: 20250716
  Serious: No
  Sender: MERZ
  Company Number: US-MRZWEB-2025030000114

PATIENT

DRUGS (1)
  1. XEOMIN [Suspect]
     Active Substance: INCOBOTULINUMTOXINA
     Indication: Skin cosmetic procedure
     Dates: start: 20250203, end: 20250203

REACTIONS (2)
  - Therapeutic response decreased [Unknown]
  - Product preparation issue [Unknown]

NARRATIVE: CASE EVENT DATE: 20250101
